FAERS Safety Report 5159052-6 (Version None)
Quarter: 2006Q4

REPORT INFORMATION
  Report Type: 
  Country: None (occurrence: None)
  Receive Date: 20061128
  Receipt Date: 20061121
  Transmission Date: 20070319
  Serious: Yes (Other)
  Sender: FDA-Public Use
  Company Number: SG-ROXANE LABORATORIES, INC-2006-BP-13605RO

PATIENT
  Age: 46 Year
  Sex: Female

DRUGS (1)
  1. MEFLOQUINE [Suspect]
     Indication: MALARIA PROPHYLAXIS
     Dosage: ONCE WEEKLY X 3 WEEKS

REACTIONS (3)
  - CONTUSION [None]
  - PLATELET COUNT INCREASED [None]
  - RECTAL HAEMORRHAGE [None]
